FAERS Safety Report 5639672-2 (Version None)
Quarter: 2008Q1

REPORT INFORMATION
  Report Type: 
  Country: None (occurrence: None)
  Receive Date: 20080131
  Receipt Date: 20071106
  Transmission Date: 20080703
  Serious: Yes (Hospitalization)
  Sender: FDA-Public Use
  Company Number: 163-21880-07110270

PATIENT
  Age: 73 Year
  Sex: Male
  Weight: 107.0489 kg

DRUGS (3)
  1. REVLIMID [Suspect]
     Indication: PROSTATE CANCER
     Dosage: 10 MG, 2 IN 1 D, ORAL
     Route: 048
     Dates: start: 20071017
  2. KETOCONOZOLE (KETOCONAZOLE) [Suspect]
     Indication: DRUG USE FOR UNKNOWN INDICATION
     Dates: start: 20071017
  3. HYDROCORTISONE [Concomitant]

REACTIONS (8)
  - ANAEMIA [None]
  - CONSTIPATION [None]
  - DEHYDRATION [None]
  - FIBRIN D DIMER INCREASED [None]
  - HYPONATRAEMIA [None]
  - PLATELET COUNT DECREASED [None]
  - RENAL FAILURE [None]
  - WHITE BLOOD CELL COUNT INCREASED [None]
